FAERS Safety Report 11198178 (Version 1)
Quarter: 2015Q2

REPORT INFORMATION
  Report Type: Report from Study
  Country: CO (occurrence: CO)
  Receive Date: 20150618
  Receipt Date: 20150618
  Transmission Date: 20150821
  Serious: Yes (Hospitalization)
  Sender: FDA-Public Use
  Company Number: CO-ROCHE-1596009

PATIENT
  Age: 24 Year
  Sex: Male

DRUGS (1)
  1. MYCOPHENOLATE MOFETIL. [Suspect]
     Active Substance: MYCOPHENOLATE MOFETIL
     Indication: RENAL TRANSPLANT
     Route: 048

REACTIONS (1)
  - Azotaemia [Recovering/Resolving]

NARRATIVE: CASE EVENT DATE: 20150520
